FAERS Safety Report 7002342-2 (Version None)
Quarter: 2010Q3

REPORT INFORMATION
  Report Type: 
  Country: None (occurrence: None)
  Receive Date: 20100917
  Receipt Date: 20100917
  Transmission Date: 20110219
  Serious: No
  Sender: FDA-Public Use
  Company Number: None

PATIENT
  Age: 15 Year
  Sex: Female
  Weight: 55.7924 kg

DRUGS (1)
  1. PLAN B ONE-STEP [Suspect]
     Indication: PREGNANCY
     Dosage: ONCE
     Dates: start: 20100914, end: 20100914

REACTIONS (1)
  - EMOTIONAL DISTRESS [None]
